FAERS Safety Report 17015617 (Version 1)
Quarter: 2019Q4

REPORT INFORMATION
  Report Type: Report from Study
  Country: BA (occurrence: BA)
  Receive Date: 20191111
  Receipt Date: 20191111
  Transmission Date: 20200122
  Serious: Yes (Death)
  Sender: FDA-Public Use
  Company Number: BA-ROCHE-2465992

PATIENT
  Age: 69 Year
  Sex: Female

DRUGS (1)
  1. ATEZOLIZUMAB. [Suspect]
     Active Substance: ATEZOLIZUMAB
     Indication: GLIOBLASTOMA
     Dosage: MOST RECENT DOSE ON 31/MAY/2019
     Route: 042
     Dates: start: 20181212

REACTIONS (1)
  - Death [Fatal]

NARRATIVE: CASE EVENT DATE: 20191104
